FAERS Safety Report 7907047-9 (Version None)
Quarter: 2011Q4

REPORT INFORMATION
  Report Type: 
  Country: None (occurrence: None)
  Receive Date: 20111110
  Receipt Date: 20111104
  Transmission Date: 20120403
  Serious: Yes (Other)
  Sender: FDA-Public Use
  Company Number: US-B.I. PHARMACEUTICALS,INC./RIDGEFIELD-2011-BP-22721BP

PATIENT
  Age: 63 Year
  Sex: Female
  Weight: 82.1 kg

DRUGS (1)
  1. PRADAXA [Suspect]
     Dosage: 150 MG
     Dates: end: 20110709

REACTIONS (3)
  - INTENTIONAL DRUG MISUSE [None]
  - MONOPLEGIA [None]
  - PERIPHERAL EMBOLISM [None]
